FAERS Safety Report 9624905 (Version 1)
Quarter: 2013Q4

REPORT INFORMATION
  Report Type: Spontaneous
  Country: US (occurrence: US)
  Receive Date: 20131016
  Receipt Date: 20131016
  Transmission Date: 20140711
  Serious: No
  Sender: FDA-Public Use
  Company Number: US-B.I. PHARMACEUTICALS,INC./RIDGEFIELD-2013-BI-31260BP

PATIENT
  Sex: Female
  Weight: 58 kg

DRUGS (6)
  1. ZANTAC (RANITIDINE HYDROCHLORIDE) [Suspect]
     Indication: DYSPEPSIA
     Dosage: 150 MG
     Route: 048
     Dates: start: 2012
  2. VITMAIN B12 [Concomitant]
     Route: 058
  3. VITMAIN E [Concomitant]
     Route: 048
  4. PREDNISONE [Concomitant]
     Dosage: 10 MG
     Route: 048
  5. OMEGA 3 [Concomitant]
     Route: 048
  6. VITMAIN D 3 [Concomitant]
     Route: 048

REACTIONS (1)
  - Hearing impaired [Not Recovered/Not Resolved]
